FAERS Safety Report 11916542 (Version 2)
Quarter: 2016Q4

REPORT INFORMATION
  Report Type: Spontaneous
  Country: IT (occurrence: None)
  Receive Date: 20160113
  Receipt Date: 20160718
  Transmission Date: 20170206
  Serious: Yes (Hospitalization)
  Sender: FDA-Public Use
  Company Number: IT2015K7214SPO

PATIENT
  Age: 61 Year
  Sex: Male

DRUGS (4)
  1. DELTACORTENE [Suspect]
     Active Substance: PREDNISONE
     Indication: DRUG ABUSE
     Route: 048
     Dates: start: 20150907, end: 20150907
  2. BISOPROLOL [Suspect]
     Active Substance: BISOPROLOL
     Indication: DRUG ABUSE
     Route: 048
     Dates: start: 20150907, end: 20150907
  3. LANSOPRAZOLE. [Suspect]
     Active Substance: LANSOPRAZOLE
     Indication: DRUG ABUSE
     Route: 048
     Dates: start: 20150907, end: 20150907
  4. VALIUM [Suspect]
     Active Substance: DIAZEPAM
     Indication: DRUG ABUSE
     Route: 048
     Dates: start: 20150907, end: 20150907

REACTIONS (4)
  - Intentional self-injury [None]
  - Drug abuse [None]
  - Sopor [None]
  - Electrocardiogram ST segment abnormal [None]

NARRATIVE: CASE EVENT DATE: 20150907
